FAERS Safety Report 25869778 (Version 1)
Quarter: 2025Q4

REPORT INFORMATION
  Report Type: Spontaneous
  Country: AU (occurrence: AU)
  Receive Date: 20251001
  Receipt Date: 20251001
  Transmission Date: 20260118
  Serious: Yes (Hospitalization, Other)
  Sender: YUNG SHIN PHARMACEUTICAL INDUSTRIAL
  Company Number: AU-Yung Shin Pharmaceutical Ind.  Co., Ltd.-2185694

PATIENT
  Age: 47 Year
  Sex: Female

DRUGS (1)
  1. CLONIDINE HYDROCHLORIDE [Suspect]
     Active Substance: CLONIDINE HYDROCHLORIDE
     Indication: Product used for unknown indication

REACTIONS (3)
  - Stress cardiomyopathy [Unknown]
  - Intentional overdose [Unknown]
  - Suicide attempt [Unknown]
